FAERS Safety Report 23962526 (Version 2)
Quarter: 2024Q2

REPORT INFORMATION
  Report Type: Spontaneous
  Country: GR (occurrence: GR)
  Receive Date: 20240611
  Receipt Date: 20240613
  Transmission Date: 20240716
  Serious: No
  Sender: FDA-Public Use
  Company Number: GR-PFIZER INC-PV202400073925

PATIENT
  Age: 9 Year
  Sex: Male
  Weight: 25 kg

DRUGS (3)
  1. GENOTROPIN [Suspect]
     Active Substance: SOMATROPIN
     Indication: Dwarfism
     Dosage: 6 MG, WEEKLY (6 DAYS AND 1 DAY OFF) / FOR ONE WEEK
     Route: 058
     Dates: start: 20240412
  2. GENOTROPIN [Suspect]
     Active Substance: SOMATROPIN
     Dosage: 7 MG, WEEKLY (6 DAYS AND 1 DAY OFF) / FOR THE NEXT WEEK (ONE DAY RECEIVED 2 MG)
     Route: 058
     Dates: start: 20240412
  3. LEVOTHYROXINE [Concomitant]
     Active Substance: LEVOTHYROXINE\LEVOTHYROXINE SODIUM
     Dosage: 1 X1 AND 2X/WEEK 1.5 X1

REACTIONS (3)
  - Needle issue [Unknown]
  - Incorrect dose administered by device [Unknown]
  - Wrong technique in device usage process [Unknown]

NARRATIVE: CASE EVENT DATE: 20240603
